FAERS Safety Report 7576627-5 (Version None)
Quarter: 2011Q2

REPORT INFORMATION
  Report Type: 
  Country: None (occurrence: None)
  Receive Date: 20110628
  Receipt Date: 20110617
  Transmission Date: 20111010
  Serious: Yes (Hospitalization)
  Sender: FDA-Public Use
  Company Number: JP-ELI_LILLY_AND_COMPANY-JP201106005275

PATIENT
  Sex: Female

DRUGS (2)
  1. BYETTA [Suspect]
     Route: 058
  2. MEXITIL [Concomitant]
     Route: 048

REACTIONS (1)
  - FEELING ABNORMAL [None]
